FAERS Safety Report 8971538 (Version 1)
Quarter: 2012Q4

REPORT INFORMATION
  Report Type: 
  Country: MX (occurrence: MX)
  Receive Date: 20121218
  Receipt Date: 20121218
  Transmission Date: 20130627
  Serious: Yes (Hospitalization, Other)
  Sender: FDA-Public Use
  Company Number: PHHY2012MX115893

PATIENT
  Age: 51 Year
  Sex: Female

DRUGS (1)
  1. CO-DIOVAN [Suspect]
     Indication: HYPERTENSION
     Dosage: 1 DF (80/12.5mg) daily
     Route: 048
     Dates: start: 20121127, end: 20121208

REACTIONS (2)
  - Carotid artery aneurysm [Not Recovered/Not Resolved]
  - Thrombosis [Not Recovered/Not Resolved]
